FAERS Safety Report 9167394 (Version 3)
Quarter: 2013Q2

REPORT INFORMATION
  Report Type: Report from Study
  Country: JP (occurrence: JP)
  Receive Date: 20130318
  Receipt Date: 20130501
  Transmission Date: 20140414
  Serious: Yes (Hospitalization)
  Sender: FDA-Public Use
  Company Number: JP-JNJFOC-20130306497

PATIENT
  Age: 84 Year
  Sex: Male
  Weight: 155 kg

DRUGS (16)
  1. STELARA [Suspect]
     Indication: PSORIASIS
     Route: 058
     Dates: start: 20130212
  2. STELARA [Suspect]
     Indication: PSORIASIS
     Route: 058
     Dates: start: 20121120
  3. STELARA [Suspect]
     Indication: PSORIASIS
     Route: 058
     Dates: start: 20120605
  4. STELARA [Suspect]
     Indication: PSORIASIS
     Route: 058
     Dates: start: 20120313
  5. STELARA [Suspect]
     Indication: PSORIASIS
     Route: 058
     Dates: start: 20120214
  6. STELARA [Suspect]
     Indication: PSORIASIS
     Route: 058
     Dates: start: 20120828
  7. ALLELOCK [Concomitant]
     Indication: PSORIASIS
     Route: 048
  8. DERMOVATE [Concomitant]
     Indication: PSORIASIS
     Route: 062
  9. EBASTEL [Concomitant]
     Indication: PRURITUS
     Route: 048
  10. PLAVIX [Concomitant]
     Indication: PROPHYLAXIS
     Route: 048
  11. LIPITOR [Concomitant]
     Indication: HYPERLIPIDAEMIA
     Route: 048
  12. BLOPRESS [Concomitant]
     Indication: HYPERTENSION
     Route: 048
  13. ARTIST [Concomitant]
     Indication: HYPERTENSION
     Route: 048
  14. TAKEPRON [Concomitant]
     Indication: PROPHYLAXIS
     Route: 048
  15. NITOROL [Concomitant]
     Indication: PROPHYLAXIS
     Route: 060
     Dates: start: 20120529
  16. LOCOID [Concomitant]
     Indication: PSORIASIS
     Route: 061
     Dates: start: 20120717

REACTIONS (2)
  - Hepatic function abnormal [Recovered/Resolved]
  - Bile duct stone [Recovered/Resolved]
